FAERS Safety Report 8561390-1 (Version None)
Quarter: 2012Q3

REPORT INFORMATION
  Report Type: 
  Country: None (occurrence: None)
  Receive Date: 20120802
  Receipt Date: 20120723
  Transmission Date: 20120928
  Serious: Yes (Hospitalization)
  Sender: FDA-Public Use
  Company Number: US-GLAXOSMITHKLINE-A0899185A

PATIENT
  Age: 49 Year
  Sex: Male
  Weight: 102.3 kg

DRUGS (1)
  1. AVANDIA [Suspect]
     Indication: DIABETES MELLITUS
     Dosage: 10MG TWICE PER DAY
     Route: 048
     Dates: start: 20090101

REACTIONS (5)
  - ARTERIOSCLEROSIS [None]
  - SPEECH DISORDER [None]
  - ATRIOVENTRICULAR BLOCK [None]
  - CAROTID ARTERY OCCLUSION [None]
  - DEMENTIA [None]
